FAERS Safety Report 10276749 (Version 1)
Quarter: 2014Q3

REPORT INFORMATION
  Report Type: Spontaneous
  Country: CN (occurrence: None)
  Receive Date: 20140701
  Receipt Date: 20140701
  Transmission Date: 20150326
  Serious: Yes (Other)
  Sender: FDA-Public Use
  Company Number: 2014AMD00016

PATIENT
  Age: 43 Year
  Sex: Female
  Weight: 54.9 kg

DRUGS (1)
  1. ALBENDAZOLE [Suspect]
     Active Substance: ALBENDAZOLE
     Indication: ASCARIASIS
     Dosage: 2 TABLETS, 1X/DAY, ORAL
     Route: 048
     Dates: start: 20120725, end: 20120725

REACTIONS (2)
  - Polymenorrhoea [None]
  - Menstrual disorder [None]

NARRATIVE: CASE EVENT DATE: 20120726
